FAERS Safety Report 7489365-4 (Version None)
Quarter: 2011Q2

REPORT INFORMATION
  Report Type: 
  Country: None (occurrence: None)
  Receive Date: 20110518
  Receipt Date: 20110511
  Transmission Date: 20111010
  Serious: No
  Sender: FDA-Public Use
  Company Number: US-BAYER-2011-041003

PATIENT
  Age: 58 Year
  Sex: Female

DRUGS (8)
  1. MAXZIDE [Concomitant]
  2. SYNTHROID [Concomitant]
  3. ZOCOR [Concomitant]
  4. AVELOX [Suspect]
     Indication: ANTIBIOTIC THERAPY
     Dosage: MGUNK, QD
     Route: 048
     Dates: start: 20110209, end: 20110211
  5. MULTI-VITAMIN [Concomitant]
  6. TOPRAL [Concomitant]
  7. PRILOSEC [Concomitant]
  8. PROZAC [Concomitant]

REACTIONS (3)
  - SWELLING FACE [None]
  - PRURITUS [None]
  - ERYTHEMA [None]
